FAERS Safety Report 4851951-5 (Version None)
Quarter: 2005Q4

REPORT INFORMATION
  Report Type: 
  Country: None (occurrence: None)
  Receive Date: 20051209
  Receipt Date: 20051207
  Transmission Date: 20060501
  Serious: Yes (Hospitalization, Other)
  Sender: FDA-Public Use
  Company Number: A-US2003-02331

PATIENT
  Age: 73 Year
  Sex: Female

DRUGS (13)
  1. TRACLEER [Suspect]
     Indication: PULMONARY HYPERTENSION
     Dosage: 62.5 MG, BID; 62.5 MG, QD; 125 MG, BID
     Dates: start: 20021024, end: 20021025
  2. TRACLEER [Suspect]
     Indication: PULMONARY HYPERTENSION
     Dosage: 62.5 MG, BID; 62.5 MG, QD; 125 MG, BID
     Dates: start: 20030117, end: 20030120
  3. TRACLEER [Suspect]
     Indication: PULMONARY HYPERTENSION
     Dosage: 62.5 MG, BID; 62.5 MG, QD; 125 MG, BID
     Dates: start: 20030124, end: 20030201
  4. TRACLEER [Suspect]
     Indication: PULMONARY HYPERTENSION
     Dosage: 62.5 MG, BID; 62.5 MG, QD; 125 MG, BID
     Dates: start: 20030201, end: 20030219
  5. ISOSORBIDE (ISOSORBIDE) [Concomitant]
  6. CALCIUM (CALCIUM) [Concomitant]
  7. GLUCOSAMINE W/CHONDROITIN SULFATES (GLUCOSAMINE SULFATE, MANGANESE, CH [Concomitant]
  8. POTASSIUM (POTASSIUM) [Concomitant]
  9. LASIX [Concomitant]
  10. DOXEPIN (DOXEPIN) [Concomitant]
  11. BEXTRA [Concomitant]
  12. ZEBETA [Concomitant]
  13. COUMADIN [Concomitant]

REACTIONS (5)
  - ARTHRALGIA [None]
  - HEPATITIS [None]
  - MYALGIA [None]
  - OEDEMA PERIPHERAL [None]
  - PNEUMONIA [None]
